FAERS Safety Report 10059510 (Version 1)
Quarter: 2014Q2

REPORT INFORMATION
  Report Type: Spontaneous
  Country: US (occurrence: US)
  Receive Date: 20140404
  Receipt Date: 20140404
  Transmission Date: 20141212
  Serious: Yes (Other)
  Sender: FDA-Public Use
  Company Number: US-PFIZER INC-2014095438

PATIENT
  Age: 63 Year
  Sex: Female
  Weight: 105.67 kg

DRUGS (3)
  1. LYRICA [Suspect]
     Dosage: 75 MG, DAILY
  2. LYRICA [Suspect]
     Dosage: 75 MG, 2X/DAY
  3. CYMBALTA [Concomitant]
     Dosage: 60 MG, DAILY

REACTIONS (5)
  - Breast cancer [Unknown]
  - Disease progression [Unknown]
  - Diabetes mellitus [Unknown]
  - Neuropathy peripheral [Unknown]
  - Pain [Unknown]
